FAERS Safety Report 9622447 (Version 2)
Quarter: 2013Q4

REPORT INFORMATION
  Report Type: Spontaneous
  Country: US (occurrence: US)
  Receive Date: 20131015
  Receipt Date: 20131015
  Transmission Date: 20140711
  Serious: Yes (Other)
  Sender: FDA-Public Use
  Company Number: US-NAPPMUNDI-USA-2012-0086407

PATIENT
  Sex: Male

DRUGS (2)
  1. BUTRANS [Suspect]
     Indication: BACK PAIN
     Route: 062
  2. PERCOCET                           /00867901/ [Concomitant]
     Indication: BACK PAIN
     Dosage: 8 TABLET, DAILY

REACTIONS (2)
  - Drug dependence [Unknown]
  - Drug effect increased [Unknown]
